FAERS Safety Report 8208700-2 (Version None)
Quarter: 2012Q1

REPORT INFORMATION
  Report Type: 
  Country: None (occurrence: None)
  Receive Date: 20120314
  Receipt Date: 20120308
  Transmission Date: 20120608
  Serious: Yes (Other)
  Sender: FDA-Public Use
  Company Number: US-PFIZER INC-2012063741

PATIENT
  Age: 50 Year
  Sex: Male
  Weight: 67.7 kg

DRUGS (2)
  1. IMC-A12 [Suspect]
     Indication: SARCOMA METASTATIC
     Dosage: 6 MG/M2, WEEKLY
     Route: 042
     Dates: start: 20100628, end: 20100712
  2. TEMSIROLIMUS [Suspect]
     Indication: SARCOMA METASTATIC
     Dosage: 25 MG, WEEKLY
     Route: 042
     Dates: start: 20100628, end: 20100712

REACTIONS (5)
  - DEHYDRATION [None]
  - ABDOMINAL PAIN [None]
  - DIARRHOEA [None]
  - ASTHENIA [None]
  - CONSTIPATION [None]
